FAERS Safety Report 11840867 (Version 1)
Quarter: 2015Q4

REPORT INFORMATION
  Report Type: Spontaneous
  Country: GB (occurrence: GB)
  Receive Date: 20151216
  Receipt Date: 20151216
  Transmission Date: 20160305
  Serious: Yes (Other)
  Sender: FDA-Public Use
  Company Number: GB-JNJFOC-20151205985

PATIENT
  Sex: Female

DRUGS (1)
  1. SIMPONI [Suspect]
     Active Substance: GOLIMUMAB
     Indication: PRODUCT USED FOR UNKNOWN INDICATION
     Dosage: ADMINISTERED 3 INJECTIONS SO FAR
     Route: 058

REACTIONS (4)
  - Crohn^s disease [Unknown]
  - Blood iron decreased [Recovering/Resolving]
  - Back disorder [Not Recovered/Not Resolved]
  - Alopecia [Unknown]
